FAERS Safety Report 8295806-5 (Version None)
Quarter: 2012Q2

REPORT INFORMATION
  Report Type: 
  Country: None (occurrence: None)
  Receive Date: 20120416
  Receipt Date: 20120405
  Transmission Date: 20120825
  Serious: Yes (Hospitalization)
  Sender: FDA-Public Use
  Company Number: 2012SP018179

PATIENT
  Age: 65 Year
  Sex: Male

DRUGS (3)
  1. VICTRELIS [Suspect]
     Indication: HEPATITIS C
     Dosage: 800 MG; TID; PO
     Route: 048
     Dates: start: 20111117
  2. PEGINTERFERON ALFA-2B [Suspect]
     Dosage: 180 MG; QW; SC
     Route: 058
  3. RIBAVIRIN [Suspect]
     Dosage: 600 MG; BID

REACTIONS (8)
  - NEUTROPHIL COUNT DECREASED [None]
  - DRUG DOSE OMISSION [None]
  - VOMITING [None]
  - PLATELET COUNT DECREASED [None]
  - OESOPHAGEAL RUPTURE [None]
  - HAEMOGLOBIN DECREASED [None]
  - HAEMATEMESIS [None]
  - PROTHROMBIN TIME PROLONGED [None]
